FAERS Safety Report 8590706-5 (Version None)
Quarter: 2012Q3

REPORT INFORMATION
  Report Type: 
  Country: None (occurrence: None)
  Receive Date: 20120813
  Receipt Date: 20120802
  Transmission Date: 20120928
  Serious: Yes (Hospitalization)
  Sender: FDA-Public Use
  Company Number: US-CELGENEUS-163-21880-12043072

PATIENT
  Sex: Male

DRUGS (45)
  1. LIPITOR [Concomitant]
     Dosage: 40 MILLIGRAM
     Route: 048
     Dates: start: 20120523
  2. DULEEK-MET [Concomitant]
     Route: 048
     Dates: start: 20110305
  3. CARVEDILOL [Concomitant]
     Dosage: 12.5 MILLIGRAM
     Route: 048
     Dates: start: 20120420
  4. REVLIMID [Suspect]
     Indication: MULTIPLE MYELOMA
     Dosage: 12.5 MILLIGRAM
     Route: 048
     Dates: start: 20110520
  5. CITALOPRAM [Concomitant]
     Dosage: 20 MILLIGRAM
     Route: 048
     Dates: start: 20120626
  6. TAMSULOSIN HCL [Concomitant]
     Dosage: .4 MILLIGRAM
     Route: 048
     Dates: start: 20111216
  7. VOLTAREN [Concomitant]
     Dosage: 1%, 3X100GM
     Route: 065
  8. HYDROCODONE BITARTRATE AND ACETAMINOPHEN [Concomitant]
     Dosage: 10MG/32
     Route: 065
     Dates: start: 20110506
  9. FUROSEMIDE [Concomitant]
     Dosage: 20 MILLIGRAM
     Route: 048
     Dates: start: 20120405
  10. ISOSORBIDE MONONITRATE [Concomitant]
     Dosage: 60
     Route: 065
     Dates: start: 20120221
  11. HUMALOG KWIKPEN [Concomitant]
     Dosage: 100/ML
     Route: 050
     Dates: start: 20110627
  12. ASPIRIN [Concomitant]
     Dosage: 81 MILLIGRAM
     Route: 048
  13. ERYTHROMYCIN BASE [Concomitant]
     Dosage: 500 MILLIGRAM
     Route: 048
     Dates: start: 20120610
  14. LYRICA [Concomitant]
     Dosage: 75 MILLIGRAM
     Route: 048
     Dates: start: 20120321
  15. RAMIPRIL [Concomitant]
     Dosage: 10 MILLIGRAM
     Route: 048
     Dates: start: 20111109
  16. ISOSORBIDE MONONITRATE [Concomitant]
     Dosage: 60
     Route: 065
     Dates: start: 20110513, end: 20111209
  17. METFORMIN HYDROCHLORIDE [Concomitant]
     Dosage: 1000 MILLIGRAM
     Route: 048
     Dates: start: 20110326
  18. HYDROCODONE BITARTRATE AND ACETAMINOPHEN [Concomitant]
     Route: 065
     Dates: start: 20120726
  19. COLYTE FLAVOR PACKS [Concomitant]
     Route: 065
     Dates: start: 20120612
  20. LYRICA [Concomitant]
     Dosage: 75 MILLIGRAM
     Route: 048
     Dates: start: 20120611, end: 20120702
  21. DEXAMETHASONE [Concomitant]
     Dosage: 4 MILLIGRAM
     Route: 048
     Dates: start: 20120308
  22. NOVOLOG [Concomitant]
     Dosage: 5X3ML
     Route: 065
     Dates: start: 20120228
  23. TAMSULOSIN HCL [Concomitant]
     Dosage: .4 MILLIGRAM
     Route: 048
     Dates: start: 20110508
  24. CARVEDILOL [Concomitant]
     Dosage: 12.5 MILLIGRAM
     Route: 048
     Dates: start: 20110224
  25. MIRALAX [Concomitant]
     Dosage: 3350NF
     Route: 048
  26. SENNAPLUS [Concomitant]
     Dosage: 8.6/50MG
     Route: 048
  27. NEOMYCIN SULFATE TAB [Concomitant]
     Dosage: 500 MILLIGRAM
     Route: 048
     Dates: start: 20120611
  28. FUROSEMIDE [Concomitant]
     Dosage: 20 MILLIGRAM
     Route: 048
     Dates: end: 20120323
  29. RAMIPRIL [Concomitant]
     Dosage: 5 MILLIGRAM
     Route: 048
     Dates: start: 20120228
  30. ISOSORBIDE MONONITRATE [Concomitant]
     Dosage: 60
     Route: 065
     Dates: start: 20120610
  31. METFORMIN HYDROCHLORIDE [Concomitant]
     Dosage: 1000 MILLIGRAM
     Route: 048
     Dates: start: 20120210
  32. METFORMIN HYDROCHLORIDE [Concomitant]
     Dosage: 500 MILLIGRAM
     Route: 048
  33. METAMUCIL-2 [Concomitant]
     Dosage: .52 GRAM
     Route: 048
  34. COLACE [Concomitant]
     Dosage: 100 MILLIGRAM
     Route: 048
  35. ACTOS [Concomitant]
     Dosage: 30 MILLIGRAM
     Route: 048
     Dates: start: 20120228
  36. LYRICA [Concomitant]
     Dosage: 50 MILLIGRAM
     Route: 048
     Dates: start: 20110306
  37. CITALOPRAM [Concomitant]
     Dosage: 20 MILLIGRAM
     Route: 048
     Dates: start: 20120319
  38. RAMIPRIL [Concomitant]
     Dosage: 10 MILLIGRAM
     Route: 048
     Dates: start: 20110513
  39. LANTUS SOLOSTAR [Concomitant]
     Dosage: 10 MILLILITER
     Route: 050
     Dates: start: 20110810
  40. VITAMIN B6 [Concomitant]
     Dosage: 50 MILLIGRAM
     Route: 048
     Dates: start: 20120425
  41. AZITHROMYCIN [Concomitant]
     Dosage: 250 MILLIGRAM
     Route: 048
     Dates: start: 20120213
  42. LIPITOR [Concomitant]
     Dosage: 40 MILLIGRAM
     Route: 048
     Dates: start: 20110513
  43. LIPITOR [Concomitant]
     Dosage: 40 MILLIGRAM
     Route: 048
     Dates: start: 20120209, end: 20120522
  44. OYSCO 500/D [Concomitant]
     Dosage: 500 MILLIGRAM
     Route: 048
     Dates: start: 20111111, end: 20111121
  45. OYSCO 500/D [Concomitant]
     Dosage: 500 MILLIGRAM
     Route: 048
     Dates: end: 20120323

REACTIONS (1)
  - COLON CANCER [None]
